FAERS Safety Report 13053113 (Version 2)
Quarter: 2017Q1

REPORT INFORMATION
  Report Type: Report from Study
  Country: CA (occurrence: CA)
  Receive Date: 20161222
  Receipt Date: 20170119
  Transmission Date: 20170428
  Serious: Yes (Other)
  Sender: FDA-Public Use
  Company Number: CA-TEVA-721671ACC

PATIENT
  Sex: Female

DRUGS (12)
  1. VIMPAT [Concomitant]
     Active Substance: LACOSAMIDE
  2. KEPPRA [Concomitant]
     Active Substance: LEVETIRACETAM
  3. BISOPROLOL [Concomitant]
     Active Substance: BISOPROLOL
  4. CARBAMAZAPINE [Concomitant]
     Active Substance: CARBAMAZEPINE
  5. TOPIRAMATE. [Concomitant]
     Active Substance: TOPIRAMATE
  6. VITAMIN D [Concomitant]
     Active Substance: CHOLECALCIFEROL
  7. VENLAFAXINE [Concomitant]
     Active Substance: VENLAFAXINE HYDROCHLORIDE
  8. FIRISIUM [Concomitant]
  9. METROCREAM [Concomitant]
     Active Substance: METRONIDAZOLE
  10. COPAXONE [Suspect]
     Active Substance: GLATIRAMER ACETATE
     Indication: MULTIPLE SCLEROSIS
     Dosage: 20 MILLIGRAM/MILLILITERS DAILY;
     Route: 058
     Dates: start: 20150924
  11. ELAVIL [Concomitant]
     Active Substance: AMITRIPTYLINE HYDROCHLORIDE
  12. ATIVAN [Concomitant]
     Active Substance: LORAZEPAM

REACTIONS (3)
  - Epilepsy [Unknown]
  - Major depression [Not Recovered/Not Resolved]
  - Suicidal ideation [Recovered/Resolved]
